FAERS Safety Report 19574687 (Version 1)
Quarter: 2021Q3

REPORT INFORMATION
  Report Type: Spontaneous
  Country: US (occurrence: US)
  Receive Date: 20210719
  Receipt Date: 20210719
  Transmission Date: 20211014
  Serious: Yes (Hospitalization, Other)
  Sender: FDA-Public Use
  Company Number: US-HIKMA PHARMACEUTICALS USA INC.-US-H14001-21-03240

PATIENT
  Age: 58 Year
  Sex: Male

DRUGS (2)
  1. DOCETAXEL. [Suspect]
     Active Substance: DOCETAXEL
     Indication: SOFT TISSUE SARCOMA
     Dosage: UNKNOWN
     Route: 065
  2. GEMCITABINE. [Suspect]
     Active Substance: GEMCITABINE
     Indication: SOFT TISSUE SARCOMA
     Dosage: UNKNOWN
     Route: 065

REACTIONS (4)
  - Hypoxia [Unknown]
  - Cough [Unknown]
  - Dyspnoea [Unknown]
  - Tachycardia [Unknown]
